FAERS Safety Report 20968258 (Version 2)
Quarter: 2022Q2

REPORT INFORMATION
  Report Type: Spontaneous
  Country: FR (occurrence: FR)
  Receive Date: 20220616
  Receipt Date: 20220620
  Transmission Date: 20220721
  Serious: Yes (Hospitalization, Other)
  Sender: FDA-Public Use
  Company Number: None

PATIENT
  Age: 70 Year
  Sex: Female
  Weight: 75 kg

DRUGS (3)
  1. MEKINIST [Suspect]
     Active Substance: TRAMETINIB DIMETHYL SULFOXIDE
     Indication: Metastatic malignant melanoma
     Dosage: UNK
     Route: 065
     Dates: start: 20201005
  2. TAFINLAR [Suspect]
     Active Substance: DABRAFENIB MESYLATE
     Indication: Metastatic malignant melanoma
     Dosage: UNK
     Route: 065
     Dates: start: 20201005, end: 20210121
  3. LEVOTHYROXINE [Concomitant]
     Active Substance: LEVOTHYROXINE
     Indication: Product used for unknown indication
     Dosage: UNK
     Route: 065

REACTIONS (8)
  - Atrioventricular block complete [Recovered/Resolved with Sequelae]
  - Atrioventricular block complete [Recovered/Resolved]
  - Palpitations [Unknown]
  - Ventricular hypokinesia [Unknown]
  - Blood pressure systolic increased [Unknown]
  - Dizziness [Unknown]
  - Left ventricular dysfunction [Unknown]
  - Left ventricular end-diastolic pressure increased [Unknown]

NARRATIVE: CASE EVENT DATE: 20210114
